FAERS Safety Report 14842284 (Version 1)
Quarter: 2018Q2

REPORT INFORMATION
  Report Type: Spontaneous
  Country: FR (occurrence: FR)
  Receive Date: 20180503
  Receipt Date: 20180503
  Transmission Date: 20180711
  Serious: Yes (Other)
  Sender: FDA-Public Use
  Company Number: FR-MERCK KGAA-2047106

PATIENT
  Age: 52 Year
  Sex: Female

DRUGS (1)
  1. NOVOTHYROX [Suspect]
     Active Substance: LEVOTHYROXINE SODIUM
     Indication: POST PROCEDURAL HYPOTHYROIDISM
     Dates: start: 2017

REACTIONS (14)
  - Arthralgia [None]
  - Decreased activity [None]
  - Asthenia [None]
  - Impaired work ability [None]
  - Personal relationship issue [None]
  - Dizziness [None]
  - Hyperthyroidism [None]
  - Anxiety [None]
  - Pain [None]
  - Mood altered [None]
  - Memory impairment [None]
  - Blood thyroid stimulating hormone increased [None]
  - Beta globulin decreased [None]
  - Insomnia [None]

NARRATIVE: CASE EVENT DATE: 2017
